APPROVED DRUG PRODUCT: BENZTROPINE MESYLATE
Active Ingredient: BENZTROPINE MESYLATE
Strength: 1MG
Dosage Form/Route: TABLET;ORAL
Application: A040103 | Product #002 | TE Code: AA
Applicant: AIPING PHARMACEUTICAL INC
Approved: Dec 12, 1996 | RLD: No | RS: No | Type: RX